FAERS Safety Report 12397981 (Version 1)
Quarter: 2016Q2

REPORT INFORMATION
  Report Type: Spontaneous
  Country: US (occurrence: None)
  Receive Date: 20160523
  Receipt Date: 20160523
  Transmission Date: 20160815
  Serious: Yes (Hospitalization)
  Sender: FDA-Public Use
  Company Number: None

PATIENT
  Age: 87 Year
  Sex: Female

DRUGS (18)
  1. ALLOPURINOL. [Concomitant]
     Active Substance: ALLOPURINOL
  2. SALMETEROL [Concomitant]
     Active Substance: SALMETEROL
  3. POTASSIUM CHLORIDE. [Concomitant]
     Active Substance: POTASSIUM CHLORIDE
  4. SENNA [Concomitant]
     Active Substance: SENNA LEAF\SENNOSIDES\SENNOSIDES A AND B
  5. SOTALOL. [Concomitant]
     Active Substance: SOTALOL
  6. METFORMIN [Suspect]
     Active Substance: METFORMIN HYDROCHLORIDE
     Route: 048
  7. ACETAMINOPHEN. [Concomitant]
     Active Substance: ACETAMINOPHEN
  8. ALBUTEROL. [Concomitant]
     Active Substance: ALBUTEROL
  9. ATORVASTATIN [Concomitant]
     Active Substance: ATORVASTATIN
  10. ASPIRIN. [Concomitant]
     Active Substance: ASPIRIN
  11. DOCUSATE [Concomitant]
     Active Substance: DOCUSATE
  12. FUROSEMIDE. [Concomitant]
     Active Substance: FUROSEMIDE
  13. SODIUM CHLORIDE NASAL SPRAY [Concomitant]
  14. GLIPIZIDE. [Suspect]
     Active Substance: GLIPIZIDE
     Indication: HYPERGLYCAEMIA
     Route: 048
     Dates: start: 20080401, end: 20160405
  15. WARFARIN [Concomitant]
     Active Substance: WARFARIN
  16. FAMOTIDINE. [Concomitant]
     Active Substance: FAMOTIDINE
  17. FLUTICASONE [Concomitant]
     Active Substance: FLUTICASONE\FLUTICASONE PROPIONATE
  18. LISINOPRIL. [Concomitant]
     Active Substance: LISINOPRIL

REACTIONS (3)
  - Hypoglycaemia [None]
  - Blood glucose fluctuation [None]
  - Fall [None]

NARRATIVE: CASE EVENT DATE: 20160405
